FAERS Safety Report 15051591 (Version 1)
Quarter: 2018Q2

REPORT INFORMATION
  Report Type: Report from Study
  Country: US (occurrence: US)
  Receive Date: 20180622
  Receipt Date: 20180622
  Transmission Date: 20180711
  Serious: Yes (Hospitalization)
  Sender: FDA-Public Use
  Company Number: US-JNJFOC-20180626883

PATIENT
  Age: 41 Year
  Sex: Female

DRUGS (9)
  1. ADDERALL [Concomitant]
     Active Substance: AMPHETAMINE ASPARTATE\AMPHETAMINE SULFATE\DEXTROAMPHETAMINE SACCHARATE\DEXTROAMPHETAMINE SULFATE
  2. LYRICA [Concomitant]
     Active Substance: PREGABALIN
  3. IRON [Concomitant]
     Active Substance: IRON
  4. CLONAZEPAM. [Concomitant]
     Active Substance: CLONAZEPAM
  5. FISH OIL W/TOCOPHEROL [Concomitant]
  6. NOXAFIL [Concomitant]
     Active Substance: POSACONAZOLE
  7. POTASSIUM [Concomitant]
     Active Substance: POTASSIUM
  8. CYMBALTA [Concomitant]
     Active Substance: DULOXETINE HYDROCHLORIDE
  9. IMBRUVICA [Suspect]
     Active Substance: IBRUTINIB
     Indication: CHRONIC LYMPHOCYTIC LEUKAEMIA
     Route: 048
     Dates: start: 20180406

REACTIONS (3)
  - Off label use [Unknown]
  - Hypoxia [Recovered/Resolved]
  - Incorrect dose administered [Unknown]

NARRATIVE: CASE EVENT DATE: 20180406
